FAERS Safety Report 24673263 (Version 1)
Quarter: 2024Q4

REPORT INFORMATION
  Report Type: Spontaneous
  Country: US (occurrence: US)
  Receive Date: 20241128
  Receipt Date: 20241128
  Transmission Date: 20250115
  Serious: No
  Sender: IBSA INSTITUT BIOCHIMIQUE
  Company Number: US-IBSA PHARMA INC.-2024IBS000037

PATIENT

DRUGS (3)
  1. TIROSINT [Suspect]
     Active Substance: LEVOTHYROXINE SODIUM
     Indication: Hypothyroidism
     Dosage: 88 MICROGRAM, QD
     Route: 048
     Dates: start: 20231229, end: 20240125
  2. TIROSINT [Suspect]
     Active Substance: LEVOTHYROXINE SODIUM
     Indication: Autoimmune thyroiditis
  3. AMOXICILLIN [Suspect]
     Active Substance: AMOXICILLIN
     Indication: Limb discomfort
     Dosage: 150 MILLIGRAM
     Route: 065
     Dates: start: 2023

REACTIONS (7)
  - Limb discomfort [Unknown]
  - Vulvovaginal burning sensation [Recovering/Resolving]
  - Fungal infection [Unknown]
  - Thyroid function test abnormal [Unknown]
  - Abdominal pain upper [Unknown]
  - Hypersensitivity [Unknown]
  - Diarrhoea [Recovering/Resolving]

NARRATIVE: CASE EVENT DATE: 20231230
